FAERS Safety Report 8494464-4 (Version None)
Quarter: 2012Q3

REPORT INFORMATION
  Report Type: 
  Country: None (occurrence: None)
  Receive Date: 20120709
  Receipt Date: 20120702
  Transmission Date: 20120928
  Serious: Yes (Other)
  Sender: FDA-Public Use
  Company Number: US-BAYER-200940947NA

PATIENT
  Age: 56 Year
  Sex: Male
  Weight: 188 kg

DRUGS (37)
  1. TRASYLOL [Suspect]
     Indication: CORONARY ARTERY BYPASS
     Dosage: 1.4 ML, INITIAL DOSE
     Route: 042
     Dates: start: 20030617
  2. TRASYLOL [Suspect]
     Dosage: 200 ML PUMP PRIME
     Route: 042
     Dates: start: 20030617
  3. LEVAQUIN [Concomitant]
     Dosage: 500 MG, QOD
     Route: 048
  4. MAGNESIUM SULFATE [Concomitant]
     Dosage: UNK
     Route: 042
     Dates: start: 20030617, end: 20030617
  5. EPHEDRINE [Concomitant]
     Dosage: 100 MG, UNK
     Route: 042
     Dates: start: 20030617, end: 20030617
  6. LASIX [Concomitant]
     Dosage: 20 MG, UNK
     Route: 042
     Dates: start: 20030617, end: 20030617
  7. VANCOMYCIN [Concomitant]
     Dosage: 1 G, UNK
     Route: 042
     Dates: start: 20030617, end: 20030617
  8. WELLBUTRIN [Concomitant]
     Dosage: 150 MG, QOD
     Route: 048
  9. VASOPRESSIN [Concomitant]
     Dosage: UNK
     Route: 042
     Dates: start: 20030617, end: 20030617
  10. LASIX [Concomitant]
     Dosage: 10 MG, BYPASS
     Dates: start: 20030617, end: 20030617
  11. CEFEPIME [Concomitant]
     Dosage: 1.5 G, UNK
     Route: 042
     Dates: start: 20030617, end: 20030617
  12. PROTAMINE SULFATE [Concomitant]
     Dosage: 400 MG, UNK
     Route: 042
     Dates: start: 20030617, end: 20030617
  13. AMIODARONE HCL [Concomitant]
     Dosage: 150 MG, UNK
     Dates: start: 20030617, end: 20030617
  14. INSULIN HUMULIN [Concomitant]
     Route: 058
  15. NITROGLYCERIN [Concomitant]
     Dosage: 0.4 MG, UNK
     Route: 048
  16. SINGULAIR [Concomitant]
     Dosage: 1 U, UNK
     Route: 048
  17. DEMADEX [Concomitant]
     Dosage: 100 MG, QOD
     Route: 048
  18. ROCURONIUM BROMIDE [Concomitant]
     Dosage: 50 ML, UNK
     Route: 042
     Dates: start: 20030617, end: 20030617
  19. ADVAIR DISKUS 100/50 [Concomitant]
     Dosage: 500 MG, UNK
     Route: 048
  20. ALLOPURINOL [Concomitant]
     Dosage: 300 MG, QOD
     Route: 048
  21. ALBUMIN (HUMAN) [Concomitant]
     Dosage: 500 ML, UNK
     Route: 042
     Dates: start: 20030717, end: 20030717
  22. IMDUR [Concomitant]
     Dosage: 60 MG, QOD
     Route: 048
  23. HEPARIN [Concomitant]
  24. DOBUTAMINE HCL [Concomitant]
     Dosage: UNK
     Route: 042
     Dates: start: 20030617
  25. TRASYLOL [Suspect]
     Dosage: 2 MILLION UNITS FOLLOWED BY 70 ML/HR
     Route: 042
     Dates: start: 20030617
  26. MS CONTIN [Concomitant]
     Dosage: 40 MG, TID
     Route: 048
  27. XOPENEX [Concomitant]
     Dosage: 1.25 MG, UNK
     Route: 048
  28. ATROVENT [Concomitant]
  29. FENTANYL-100 [Concomitant]
     Dosage: UNK
     Route: 042
     Dates: start: 20030617, end: 20030617
  30. VERSED [Concomitant]
     Dosage: 10 MG, UNK
     Route: 042
     Dates: start: 20030617, end: 20030617
  31. HEPARIN [Concomitant]
     Dosage: 45000 U, UNK
     Route: 042
     Dates: start: 20030617, end: 20030617
  32. PROPOFOL [Concomitant]
     Dosage: UNK
     Route: 042
     Dates: start: 20030617, end: 20030617
  33. PLAVIX [Concomitant]
     Dosage: 75 MG, QOD
     Route: 048
  34. ISOFLURANE [Concomitant]
     Dosage: INHALATION
     Dates: start: 20030617, end: 20030617
  35. SUFENTANIL CITRATE [Concomitant]
     Dosage: UNK
     Route: 042
     Dates: start: 20030617, end: 20030617
  36. DOPAMINE HCL [Concomitant]
     Dosage: UNK
     Route: 042
     Dates: start: 20030617
  37. CARDIOPLEGIA [Concomitant]
     Dosage: 900 ML, UNK
     Dates: start: 20030617, end: 20030617

REACTIONS (12)
  - FEAR [None]
  - ANHEDONIA [None]
  - MULTI-ORGAN FAILURE [None]
  - RENAL INJURY [None]
  - RENAL FAILURE [None]
  - ANXIETY [None]
  - DEPRESSION [None]
  - PAIN [None]
  - INJURY [None]
  - DISABILITY [None]
  - PSYCHOLOGICAL TRAUMA [None]
  - UNEVALUABLE EVENT [None]
